FAERS Safety Report 23786540 (Version 3)
Quarter: 2024Q2

REPORT INFORMATION
  Report Type: Spontaneous
  Country: US (occurrence: US)
  Receive Date: 20240426
  Receipt Date: 20240607
  Transmission Date: 20240716
  Serious: No
  Sender: FDA-Public Use
  Company Number: US-HALEON-2170557

PATIENT
  Age: 75 Year

DRUGS (4)
  1. TUMS ULTRA [Suspect]
     Active Substance: CALCIUM CARBONATE
     Indication: Mineral supplementation
  2. TUMS ULTRA [Suspect]
     Active Substance: CALCIUM CARBONATE
     Indication: Mineral supplementation
     Dosage: EXPDATE:20280630EXPDATE:20280630EXPDATE:20280630
  3. TUMS ULTRA [Suspect]
     Active Substance: CALCIUM CARBONATE
     Dosage: EXPDATE:202806EXPDATE:202806EXPDATE:202806
  4. TUMS ULTRA [Suspect]
     Active Substance: CALCIUM CARBONATE
     Dosage: EXPDATE:20260620EXPDATE:20260620EXPDATE:20260620

REACTIONS (2)
  - Illness [Unknown]
  - Product complaint [Unknown]
